FAERS Safety Report 15856593 (Version 5)
Quarter: 2022Q3

REPORT INFORMATION
  Report Type: Spontaneous
  Country: JP (occurrence: JP)
  Receive Date: 20190123
  Receipt Date: 20220916
  Transmission Date: 20221026
  Serious: Yes (Death, Hospitalization, Other)
  Sender: FDA-Public Use
  Company Number: JP-CHUGAI-A2018000749ROCHE

PATIENT
  Age: 66 Year
  Sex: Female

DRUGS (9)
  1. CELLCEPT [Suspect]
     Active Substance: MYCOPHENOLATE MOFETIL
     Indication: Prophylaxis against transplant rejection
     Dosage: DOSAGE IS UNCERTAIN.
     Route: 048
     Dates: start: 2004
  2. CELLCEPT [Suspect]
     Active Substance: MYCOPHENOLATE MOFETIL
     Dosage: DOSAGE IS UNCERTAIN.
     Route: 048
  3. CELLCEPT [Suspect]
     Active Substance: MYCOPHENOLATE MOFETIL
     Dosage: DOSAGE IS UNCERTAIN.
     Route: 048
     Dates: end: 2016
  4. CELLCEPT [Suspect]
     Active Substance: MYCOPHENOLATE MOFETIL
     Route: 065
  5. PROGRAF [Concomitant]
     Active Substance: TACROLIMUS
     Dosage: DOSAGE IS UNCERTAIN.
     Route: 065
     Dates: start: 2015
  6. PREDONINE [Concomitant]
     Active Substance: PREDNISOLONE
     Dosage: DOSAGE IS UNCERTAIN.
     Route: 048
  7. NEORAL [Concomitant]
     Active Substance: CYCLOSPORINE
     Dosage: DOSAGE IS UNCERTAIN.
     Route: 048
  8. ALBUMIN HUMAN [Concomitant]
     Active Substance: ALBUMIN HUMAN
     Dosage: DOSAGE IS UNCERTAIN.
     Route: 065
  9. BETAMETHASONE SODIUM PHOSPHATE [Concomitant]
     Active Substance: BETAMETHASONE SODIUM PHOSPHATE
     Dosage: UNK
     Route: 065

REACTIONS (21)
  - Pneumonia staphylococcal [Fatal]
  - Respiratory failure [Unknown]
  - Epilepsy [Unknown]
  - Platelet count decreased [Unknown]
  - Metastases to central nervous system [Recovered/Resolved]
  - Diabetes mellitus [Unknown]
  - Psychotic disorder [Unknown]
  - Neoplasm malignant [Recovered/Resolved]
  - Cytomegalovirus infection [Unknown]
  - Neurological symptom [Unknown]
  - Infection [Unknown]
  - Epstein-Barr virus infection [Unknown]
  - Influenza [Recovered/Resolved]
  - Somnolence [Unknown]
  - Decreased appetite [Unknown]
  - White blood cell count increased [Unknown]
  - Hepatic function abnormal [Unknown]
  - Aspartate aminotransferase increased [Unknown]
  - Alanine aminotransferase increased [Unknown]
  - Blood pressure decreased [Unknown]
  - Anaemia [Unknown]

NARRATIVE: CASE EVENT DATE: 20150101
